FAERS Safety Report 19582479 (Version 1)
Quarter: 2021Q3

REPORT INFORMATION
  Report Type: Report from Study
  Country: US (occurrence: US)
  Receive Date: 20210720
  Receipt Date: 20210720
  Transmission Date: 20211014
  Serious: Yes (Hospitalization)
  Sender: FDA-Public Use
  Company Number: US-JNJFOC-20210737737

PATIENT
  Age: 76 Year
  Sex: Female

DRUGS (2)
  1. SELEXIPAG [Suspect]
     Active Substance: SELEXIPAG
     Indication: PULMONARY ARTERIAL HYPERTENSION
     Route: 048
     Dates: start: 20201112
  2. AMBRISENTAN [Suspect]
     Active Substance: AMBRISENTAN
     Indication: PRODUCT USED FOR UNKNOWN INDICATION
     Route: 065

REACTIONS (4)
  - Drug titration error [Unknown]
  - Product dose omission issue [Recovered/Resolved]
  - Fall [Unknown]
  - Dyspnoea [Unknown]

NARRATIVE: CASE EVENT DATE: 202107
